FAERS Safety Report 23859539 (Version 1)
Quarter: 2024Q2

REPORT INFORMATION
  Report Type: Report from Study
  Country: US (occurrence: US)
  Receive Date: 20240515
  Receipt Date: 20240515
  Transmission Date: 20240715
  Serious: Yes (Other)
  Sender: FDA-Public Use
  Company Number: US-MYLANLABS-2024M1016565

PATIENT
  Sex: Female
  Weight: 90.703 kg

DRUGS (4)
  1. GLATIRAMER ACETATE [Suspect]
     Active Substance: GLATIRAMER ACETATE
     Indication: Multiple sclerosis
     Dosage: 40 MILLIGRAM, 3XW (THREE TIMES A WEEK)
     Route: 058
  2. VITAMIN D [Concomitant]
     Active Substance: VITAMIN D NOS
     Dosage: UNK
     Route: 065
  3. ATORVASTATIN [Concomitant]
     Active Substance: ATORVASTATIN
     Dosage: UNK
     Route: 065
  4. METHYLCOBALAMIN [Concomitant]
     Active Substance: METHYLCOBALAMIN
     Dosage: UNK
     Route: 065

REACTIONS (9)
  - Multiple sclerosis relapse [Unknown]
  - Muscular weakness [Unknown]
  - Injection site mass [Unknown]
  - Paraesthesia [Unknown]
  - Injection site pruritus [Unknown]
  - Injection site pain [Unknown]
  - Blood prolactin increased [Unknown]
  - Product use complaint [Unknown]
  - Muscle spasms [Unknown]
